FAERS Safety Report 4661694-9 (Version None)
Quarter: 2005Q2

REPORT INFORMATION
  Report Type: 
  Country: None (occurrence: None)
  Receive Date: 20050502
  Receipt Date: 20050121
  Transmission Date: 20051028
  Serious: No
  Sender: FDA-Public Use
  Company Number: 200510620US

PATIENT

DRUGS (2)
  1. KETEK [Suspect]
  2. WARFARIN SODIUM [Concomitant]

REACTIONS (1)
  - PROTHROMBIN TIME PROLONGED [None]
